FAERS Safety Report 8303370-7 (Version None)
Quarter: 2012Q2

REPORT INFORMATION
  Report Type: 
  Country: None (occurrence: None)
  Receive Date: 20120423
  Receipt Date: 20120412
  Transmission Date: 20120825
  Serious: No
  Sender: FDA-Public Use
  Company Number: US-BIOGENIDEC-2012BI012722

PATIENT
  Age: 35 Year
  Sex: Female

DRUGS (1)
  1. AVONEX [Suspect]
     Indication: MULTIPLE SCLEROSIS
     Route: 030
     Dates: start: 20120409

REACTIONS (9)
  - PARAESTHESIA [None]
  - NAUSEA [None]
  - CHROMATURIA [None]
  - MYALGIA [None]
  - FATIGUE [None]
  - ANXIETY [None]
  - HAEMATOCHEZIA [None]
  - DIZZINESS [None]
  - INSOMNIA [None]
